FAERS Safety Report 4820740-X (Version None)
Quarter: 2005Q4

REPORT INFORMATION
  Report Type: 
  Country: None (occurrence: None)
  Receive Date: 20051103
  Receipt Date: 20051026
  Transmission Date: 20060501
  Serious: Yes (Hospitalization)
  Sender: FDA-Public Use
  Company Number: 143542USA

PATIENT
  Age: 38 Year
  Sex: Male

DRUGS (4)
  1. PIMOZIDE [Suspect]
     Indication: ANXIETY
     Dosage: 4 MG, ORAL
     Route: 048
  2. ALPRAZOLAM [Suspect]
     Indication: ANXIETY
  3. CODEINE [Concomitant]
  4. ACETAMINOPHEN [Concomitant]

REACTIONS (5)
  - LICHENOID KERATOSIS [None]
  - PSORIASIS [None]
  - RASH ERYTHEMATOUS [None]
  - RASH PAPULAR [None]
  - RASH PUSTULAR [None]
